FAERS Safety Report 14910691 (Version 2)
Quarter: 2018Q4

REPORT INFORMATION
  Report Type: Not Available
  Country: US (occurrence: US)
  Receive Date: 20180517
  Receipt Date: 20181130
  Transmission Date: 20190204
  Serious: No
  Sender: FDA-Public Use
  Company Number: US-NEUROCRINE BIOSCIENCES INC.-2018NBI01316

PATIENT
  Sex: Female

DRUGS (2)
  1. INGREZZA [Suspect]
     Active Substance: VALBENAZINE
     Indication: TARDIVE DYSKINESIA
     Dates: start: 20180403, end: 2018
  2. INGREZZA [Suspect]
     Active Substance: VALBENAZINE
     Dosage: 120 MG (1 X 80 MG AND 1 X 40 MG)

REACTIONS (2)
  - Off label use [Unknown]
  - Drug ineffective [None]

NARRATIVE: CASE EVENT DATE: 2018
